FAERS Safety Report 12810402 (Version 1)
Quarter: 2016Q4

REPORT INFORMATION
  Report Type: Spontaneous
  Country: US (occurrence: US)
  Receive Date: 20161005
  Receipt Date: 20161005
  Transmission Date: 20170207
  Serious: Yes (Hospitalization)
  Sender: FDA-Public Use
  Company Number: US-VALIDUS PHARMACEUTICALS LLC-US-2016VAL002773

PATIENT
  Age: 57 Year
  Sex: Female

DRUGS (5)
  1. PENTOXIFYLLINE. [Suspect]
     Active Substance: PENTOXIFYLLINE
     Dosage: 400 MG, TID
     Route: 065
  2. PENTOXIFYLLINE. [Suspect]
     Active Substance: PENTOXIFYLLINE
     Indication: SEGMENTED HYALINISING VASCULITIS
     Dosage: 400 MG, TID
     Route: 065
  3. PENTOXIFYLLINE. [Suspect]
     Active Substance: PENTOXIFYLLINE
     Dosage: 400 MG, QD
     Route: 065
  4. NIFEDIPINE. [Suspect]
     Active Substance: NIFEDIPINE
     Indication: SEGMENTED HYALINISING VASCULITIS
     Dosage: 30 MG, QD
     Route: 065
  5. ASPIRIN. [Suspect]
     Active Substance: ASPIRIN
     Indication: SEGMENTED HYALINISING VASCULITIS
     Dosage: 325 MG, QD
     Route: 065

REACTIONS (4)
  - Rebound effect [Recovered/Resolved]
  - Segmented hyalinising vasculitis [Recovered/Resolved]
  - Staphylococcal infection [Recovered/Resolved]
  - Drug ineffective [Recovered/Resolved]
